FAERS Safety Report 7421066-0 (Version None)
Quarter: 2011Q2

REPORT INFORMATION
  Report Type: 
  Country: None (occurrence: None)
  Receive Date: 20110418
  Receipt Date: 20110411
  Transmission Date: 20111010
  Serious: Yes (Hospitalization)
  Sender: FDA-Public Use
  Company Number: US-TEVA-276296USA

PATIENT
  Sex: Male

DRUGS (5)
  1. DEXTROPROPOXYPHENE HYDROCHLORIDE 65 MG CAPSULES [Suspect]
     Dates: start: 20080101
  2. PANTOPRAZOLE SODIUM [Concomitant]
     Indication: HYPERSENSITIVITY
  3. DEXTROPROPOXYPHENE HYDROCHLORIDE 65 MG CAPSULES [Suspect]
     Dates: start: 20090101
  4. PANTOPRAZOLE SODIUM [Concomitant]
     Indication: ABDOMINAL DISCOMFORT
     Dosage: 40 MILLIGRAM;
  5. METOPROLOL SUCCINATE [Concomitant]
     Indication: HYPERTENSION
     Dosage: 50 MILLIGRAM;

REACTIONS (3)
  - CHEST PAIN [None]
  - BACK PAIN [None]
  - DYSPNOEA [None]
